FAERS Safety Report 15183754 (Version 1)
Quarter: 2018Q3

REPORT INFORMATION
  Report Type: Spontaneous
  Country: ES (occurrence: ES)
  Receive Date: 20180723
  Receipt Date: 20180723
  Transmission Date: 20181010
  Serious: Yes (Other)
  Sender: FDA-Public Use
  Company Number: ES-MYLANLABS-2018M1054190

PATIENT
  Age: 22 Year
  Sex: Male

DRUGS (1)
  1. FENTANYL. [Suspect]
     Active Substance: FENTANYL
     Indication: PRODUCT USED FOR UNKNOWN INDICATION
     Dosage: HE WAS CONSUMING SUBLINGUAL FENTANYL PATCHES SOCIALLY FOR ONE YEAR
     Route: 048

REACTIONS (3)
  - Intentional product use issue [Unknown]
  - Drug dependence [Unknown]
  - Drug abuse [Unknown]
